FAERS Safety Report 5575093-9 (Version None)
Quarter: 2007Q4

REPORT INFORMATION
  Report Type: 
  Country: None (occurrence: None)
  Receive Date: 20071227
  Receipt Date: 20071220
  Transmission Date: 20080405
  Serious: Yes (Other)
  Sender: FDA-Public Use
  Company Number: US-ASTRAZENECA-2007UW28689

PATIENT
  Age: 26 Year
  Sex: Male

DRUGS (3)
  1. SEROQUEL [Suspect]
     Indication: BIPOLAR DISORDER
     Route: 048
     Dates: start: 20070825, end: 20070927
  2. LAMOTRIGINE [Interacting]
     Indication: BIPOLAR DISORDER
     Route: 048
     Dates: start: 20070825
  3. LAMOTRIGINE [Interacting]
     Route: 048
     Dates: start: 20070912

REACTIONS (2)
  - DRUG INTERACTION [None]
  - PRIAPISM [None]
